FAERS Safety Report 21978065 (Version 8)
Quarter: 2023Q2

REPORT INFORMATION
  Report Type: Spontaneous
  Country: CH (occurrence: CH)
  Receive Date: 20230210
  Receipt Date: 20230510
  Transmission Date: 20230721
  Serious: Yes (Hospitalization, Other)
  Sender: FDA-Public Use
  Company Number: CH-ASTELLAS-2023US003445

PATIENT
  Age: 14 Year
  Sex: Female
  Weight: 113.5 kg

DRUGS (57)
  1. PROGRAF [Suspect]
     Active Substance: TACROLIMUS
     Indication: Immunosuppression
     Dosage: UNK UNK, UNKNOWN FREQ.
     Route: 048
     Dates: start: 20200428
  2. PROGRAF [Suspect]
     Active Substance: TACROLIMUS
     Dosage: UNK UNK, UNKNOWN FREQ.
     Route: 048
     Dates: start: 20200501
  3. PROGRAF [Suspect]
     Active Substance: TACROLIMUS
     Dosage: 4.5 MG, DAILY
     Route: 048
  4. PROGRAF [Suspect]
     Active Substance: TACROLIMUS
     Dosage: 5 MG, TWICE DAILY (07:00 AND 19:00, ON AN EMPTY STOMACH)
     Route: 048
  5. PROGRAF [Suspect]
     Active Substance: TACROLIMUS
     Dosage: 4.5 MG, (2 X 4.5MG)
     Route: 065
  6. PROGRAF [Suspect]
     Active Substance: TACROLIMUS
     Route: 048
  7. PROGRAF [Suspect]
     Active Substance: TACROLIMUS
     Route: 048
  8. PROGRAF [Suspect]
     Active Substance: TACROLIMUS
     Dosage: 6 MG, TWICE DAILY (HAVE INCREASED HER TACROLIMUS BECAUSE OF REJECTIONS)(07:00 AM - 07:00 PM)
     Route: 048
  9. PROGRAF [Suspect]
     Active Substance: TACROLIMUS
     Dosage: 20 MG (2 X 10 MG), ONCE DAILY (DAILY DOSE COMBINED WITH MMF)
     Route: 048
     Dates: start: 20211210
  10. CELLCEPT [Concomitant]
     Active Substance: MYCOPHENOLATE MOFETIL
     Indication: Heart transplant
     Dosage: 1000 MG, DAILY
     Route: 048
  11. CELLCEPT [Concomitant]
     Active Substance: MYCOPHENOLATE MOFETIL
     Dosage: 1500 MG, TWICE DAILY (07:00 AM-07:00 PM)
     Route: 048
  12. CELLCEPT [Concomitant]
     Active Substance: MYCOPHENOLATE MOFETIL
     Dosage: 1000 MG, THRICE DAILY (08:00 AM ? 03:00 PM ?10:30 PM)
     Route: 048
  13. CELLCEPT [Concomitant]
     Active Substance: MYCOPHENOLATE MOFETIL
     Route: 048
  14. LANTUS [Concomitant]
     Active Substance: INSULIN GLARGINE
     Indication: Diabetes mellitus
     Dosage: 100 U/ML, UNKNOWN FREQ. (100 E/ML CLIKST/AIISTAR/JUNIORST BY SEPERATE PRESCRIPTION)
     Route: 058
  15. LANTUS [Concomitant]
     Active Substance: INSULIN GLARGINE
     Dosage: 100 U/ML, ONCE DAILY
     Route: 058
  16. AMLODIPINE [Concomitant]
     Active Substance: AMLODIPINE BESYLATE
     Indication: Hypertension
     Dosage: 5 MG, ONCE DAILY (07:00)
     Route: 048
  17. ACTRAPID [Concomitant]
     Active Substance: INSULIN HUMAN
     Indication: Product used for unknown indication
     Dosage: UNK UNK, UNKNOWN FREQ. (BY SEPARATE PRESCRIPTION)
     Route: 058
  18. ACTRAPID [Concomitant]
     Active Substance: INSULIN HUMAN
     Dosage: UNK UNK, THRICE DAILY
     Route: 058
  19. OMEPRAZOLE [Concomitant]
     Active Substance: OMEPRAZOLE
     Indication: Product used for unknown indication
     Route: 048
  20. OMEPRAZOLE [Concomitant]
     Active Substance: OMEPRAZOLE
     Dosage: 40 MG, ONCE DAILY (8:00)
     Route: 048
  21. OMEPRAZOLE [Concomitant]
     Active Substance: OMEPRAZOLE
     Dosage: 40 MG, ONCE DAILY (7:00)
     Route: 048
  22. MAGNESIUM ASPARTATE HYDROCHLORIDE [Concomitant]
     Active Substance: MAGNESIUM ASPARTATE HYDROCHLORIDE
     Indication: Hypertension
     Dosage: 20 MMOL, DAILY
     Route: 048
  23. MAGNESIUM ASPARTATE HYDROCHLORIDE [Concomitant]
     Active Substance: MAGNESIUM ASPARTATE HYDROCHLORIDE
     Route: 048
  24. MAGNESIUM ASPARTATE HYDROCHLORIDE [Concomitant]
     Active Substance: MAGNESIUM ASPARTATE HYDROCHLORIDE
     Dosage: 20 MMOL, (3 X 20 MMOL)
     Route: 065
  25. MAGNESIUM ASPARTATE HYDROCHLORIDE [Concomitant]
     Active Substance: MAGNESIUM ASPARTATE HYDROCHLORIDE
     Dosage: 10 MMOL, THRICE DAILY (08:00 AM ? 03:00 PM ?10:30PM)
     Route: 048
  26. MAGNESIUM ASPARTATE HYDROCHLORIDE [Concomitant]
     Active Substance: MAGNESIUM ASPARTATE HYDROCHLORIDE
     Dosage: 7.5 MMOL, TWICE DAILY (07:00 AM ? 07:00 PM)
     Route: 048
  27. PREDNISOLONE [Concomitant]
     Active Substance: PREDNISOLONE
     Indication: Product used for unknown indication
     Dosage: 5 MG, OTHER (1 X 2.5 MG)
     Route: 065
  28. PREDNISOLONE [Concomitant]
     Active Substance: PREDNISOLONE
     Dosage: 5 MG, ONCE DAILY (07:00)
     Route: 048
  29. PREDNISOLONE [Concomitant]
     Active Substance: PREDNISOLONE
     Route: 048
  30. PRAVASTATIN [Concomitant]
     Active Substance: PRAVASTATIN
     Indication: Prophylaxis
     Dosage: 10 MG, OTHER (1 X 10 MG)
     Route: 065
  31. MEDROL [Concomitant]
     Active Substance: METHYLPREDNISOLONE
     Indication: Product used for unknown indication
     Dosage: 16 MG, DAILY
     Route: 048
  32. MEDROL [Concomitant]
     Active Substance: METHYLPREDNISOLONE
     Dosage: 12 MG, (1 X 12 MG)
     Route: 065
  33. MEDROL [Concomitant]
     Active Substance: METHYLPREDNISOLONE
     Dosage: 10 MG, (1 X 10 MG)
     Route: 065
     Dates: start: 20201021
  34. MEDROL [Concomitant]
     Active Substance: METHYLPREDNISOLONE
     Dosage: 6 MG, ONCE DAILY (8:00)
     Route: 048
  35. SILDENAFILUM [Concomitant]
     Indication: Product used for unknown indication
     Dosage: 20 MG, THRICE DAILY (60 MG, DAILY)
     Route: 048
  36. ASPIRIN [Concomitant]
     Active Substance: ASPIRIN
     Indication: Product used for unknown indication
     Dosage: 100 MG, DAILY
     Route: 048
  37. VALCYTE [Concomitant]
     Active Substance: VALGANCICLOVIR HYDROCHLORIDE
     Indication: Product used for unknown indication
     Dosage: 900 MG, DAILY (10:30 PM)
     Route: 048
  38. VALCYTE [Concomitant]
     Active Substance: VALGANCICLOVIR HYDROCHLORIDE
     Dosage: 900 MG, (2 X 900 MG)
     Route: 065
  39. AMPHO-MORONAL [Concomitant]
     Active Substance: AMPHOTERICIN B
     Indication: Product used for unknown indication
     Dosage: 100 MG, DAILY
     Route: 048
  40. AMPHO-MORONAL [Concomitant]
     Active Substance: AMPHOTERICIN B
     Route: 048
  41. AMPHO-MORONAL [Concomitant]
     Active Substance: AMPHOTERICIN B
     Dosage: 100 MG, (4 X 100 MG)
     Route: 065
  42. NORVASC [Concomitant]
     Active Substance: AMLODIPINE BESYLATE
     Indication: Product used for unknown indication
     Dosage: 5 MG, DAILY
     Route: 048
  43. COTRIM [Concomitant]
     Active Substance: SULFAMETHOXAZOLE\TRIMETHOPRIM
     Indication: Product used for unknown indication
     Dosage: 960 MG, DAILY
     Route: 065
  44. PHENPROCOUMON [Concomitant]
     Active Substance: PHENPROCOUMON
     Indication: Product used for unknown indication
     Dosage: 3 MG, UNKNOWN FREQ.(BY SPECIFIC PRESCRIPTION)
     Route: 048
  45. ALDACTONE [Concomitant]
     Active Substance: SPIRONOLACTONE
     Indication: Product used for unknown indication
     Route: 048
  46. BISOPROLOL FUMARATE [Concomitant]
     Active Substance: BISOPROLOL FUMARATE
     Indication: Product used for unknown indication
     Route: 048
  47. ASPIRIN DL-LYSINE [Concomitant]
     Active Substance: ASPIRIN DL-LYSINE
     Indication: Product used for unknown indication
     Route: 048
  48. ACETAMINOPHEN [Concomitant]
     Active Substance: ACETAMINOPHEN
     Indication: Product used for unknown indication
     Dosage: 1000 MG, MAX. 3 TIMES PER DAY IN THE EVENT OF PAIN
     Route: 048
  49. OMEPRAZOLE [Concomitant]
     Active Substance: OMEPRAZOLE
     Indication: Product used for unknown indication
     Dosage: 40 MG, (1 X 40 MG)
     Route: 048
  50. COTRIM [Concomitant]
     Active Substance: SULFAMETHOXAZOLE\TRIMETHOPRIM
     Indication: Product used for unknown indication
     Dosage: 960 MG, (2 X 960 MG IN EACH CASE ON FRI/SAT/SUN)
     Route: 048
  51. SULFAMETHOXAZOLE\TRIMETHOPRIM [Concomitant]
     Active Substance: SULFAMETHOXAZOLE\TRIMETHOPRIM
     Indication: Product used for unknown indication
     Dosage: UNK UNK, UNKNOWN FREQ.(800/160 MG (TEMPORARY REPLACEMENT FOR COTRIM RATIOPHARM (IMP D))
     Route: 065
  52. SULFAMETHOXAZOLE\TRIMETHOPRIM [Concomitant]
     Active Substance: SULFAMETHOXAZOLE\TRIMETHOPRIM
     Dosage: 960 MG, (2 X 960 MG (FRI/SAT/SUN ONLY))
     Route: 065
  53. SULFAMETHOXAZOLE\TRIMETHOPRIM [Concomitant]
     Active Substance: SULFAMETHOXAZOLE\TRIMETHOPRIM
     Dosage: 160 MG, TWICE DAILY (FRI-SUN, 08:00 AM ? 08:00 PM)
     Route: 048
  54. KCL [Concomitant]
     Active Substance: POTASSIUM CHLORIDE
     Indication: Product used for unknown indication
     Dosage: 30 MMOL, UPTO
     Route: 065
     Dates: end: 20201020
  55. ACTRAPID [Concomitant]
     Active Substance: INSULIN HUMAN
     Indication: Diabetes mellitus
     Dosage: 100 U/ML, THRICE DAILY (07:30 ? 12:00 PM ? 06:30 PM)
     Route: 058
  56. AMOXICILLIN\CLAVULANATE POTASSIUM [Concomitant]
     Active Substance: AMOXICILLIN\CLAVULANATE POTASSIUM
     Indication: Product used for unknown indication
     Dosage: 1000 MG, THRICE DAILY (NOON)
     Route: 048
  57. AZATHIOPRINE [Concomitant]
     Active Substance: AZATHIOPRINE
     Indication: Product used for unknown indication
     Dosage: UNK UNK, UNKNOWN FREQ.
     Route: 065

REACTIONS (6)
  - Immunosuppressant drug level abnormal [Recovered/Resolved]
  - Transplant rejection [Recovered/Resolved]
  - Transplant rejection [Recovered/Resolved]
  - Transplant rejection [Recovered/Resolved]
  - Renal failure [Unknown]
  - Low cardiac output syndrome [Unknown]

NARRATIVE: CASE EVENT DATE: 20200515
